FAERS Safety Report 15661921 (Version 1)
Quarter: 2018Q4

REPORT INFORMATION
  Report Type: Spontaneous
  Country: CN (occurrence: CN)
  Receive Date: 20181127
  Receipt Date: 20181127
  Transmission Date: 20190205
  Serious: Yes (Hospitalization, Other)
  Sender: FDA-Public Use
  Company Number: CN-MYLANLABS-2018M1086919

PATIENT
  Age: 69 Year
  Sex: Male
  Weight: 52 kg

DRUGS (1)
  1. CALCITONIN SALMON MYLAN [Suspect]
     Active Substance: CALCITONIN SALMON
     Indication: BONE LOSS
     Dosage: 50 INTERNATIONAL UNIT, QD
     Route: 030
     Dates: start: 20180826, end: 20180828

REACTIONS (5)
  - Pyrexia [Recovering/Resolving]
  - Asthenia [Recovering/Resolving]
  - Dry mouth [Recovering/Resolving]
  - Decreased appetite [Recovering/Resolving]
  - Abdominal discomfort [Recovering/Resolving]

NARRATIVE: CASE EVENT DATE: 20180826
